FAERS Safety Report 5330017-4 (Version None)
Quarter: 2007Q2

REPORT INFORMATION
  Report Type: 
  Country: None (occurrence: None)
  Receive Date: 20070521
  Receipt Date: 20070515
  Transmission Date: 20071010
  Serious: Yes (Other)
  Sender: FDA-Public Use
  Company Number: B0471447A

PATIENT
  Age: 45 Year
  Sex: Female
  Weight: 78 kg

DRUGS (3)
  1. COMBIVIR [Suspect]
     Indication: ANTIVIRAL PROPHYLAXIS
     Route: 048
     Dates: start: 20070303, end: 20070324
  2. NELFINAVIR [Suspect]
     Indication: ANTIVIRAL PROPHYLAXIS
     Dosage: 1250MG PER DAY
     Route: 048
     Dates: start: 20070303, end: 20070324
  3. LEVOTHYROXINE SODIUM [Concomitant]
     Indication: HYPOTHYROIDISM
     Route: 048
     Dates: start: 20060801

REACTIONS (5)
  - ABDOMINAL DISTENSION [None]
  - ABDOMINAL PAIN [None]
  - ADVERSE DRUG REACTION [None]
  - LIVER FUNCTION TEST ABNORMAL [None]
  - NAUSEA [None]
